FAERS Safety Report 5945659-2 (Version None)
Quarter: 2008Q4

REPORT INFORMATION
  Report Type: 
  Country: None (occurrence: None)
  Receive Date: 20081107
  Receipt Date: 20081028
  Transmission Date: 20090506
  Serious: Yes (Hospitalization, Other)
  Sender: FDA-Public Use
  Company Number: BG-PFIZER INC-2008093467

PATIENT
  Age: 62 Year
  Sex: Male
  Weight: 90 kg

DRUGS (4)
  1. NIFEDIPINE [Suspect]
     Route: 048
  2. ATENOLOL [Suspect]
  3. ANTIACID [Concomitant]
     Route: 048
     Dates: start: 20081024, end: 20081024
  4. SINTROM [Concomitant]
     Route: 048
     Dates: start: 19980101, end: 20081024

REACTIONS (3)
  - CHRONIC OBSTRUCTIVE PULMONARY DISEASE [None]
  - CONDITION AGGRAVATED [None]
  - HYPERTENSION [None]
